FAERS Safety Report 17864266 (Version 1)
Quarter: 2020Q2

REPORT INFORMATION
  Report Type: Spontaneous
  Country: US (occurrence: US)
  Receive Date: 20200605
  Receipt Date: 20200605
  Transmission Date: 20200714
  Serious: No
  Sender: FDA-Public Use
  Company Number: US-CIPLA LTD.-2020US02668

PATIENT

DRUGS (5)
  1. BUDESONIDE. [Suspect]
     Active Substance: BUDESONIDE
     Dosage: 0.5 MILLIGRAM, BID
     Route: 048
     Dates: start: 2020
  2. AMLODIPINE BESYLATE. [Concomitant]
     Active Substance: AMLODIPINE BESYLATE
     Indication: BLOOD PRESSURE ABNORMAL
     Dosage: 2.5 MILLIGRAM, QD (ONCE A DAY) FROM PAST 8 MONTHS (ASCENT PHARMACEUTICALS)
     Route: 065
     Dates: start: 2019
  3. BUDESONIDE. [Suspect]
     Active Substance: BUDESONIDE
     Dosage: 0.5 MILLIGRAM, BID
     Route: 048
     Dates: start: 2020
  4. BUDESONIDE. [Suspect]
     Active Substance: BUDESONIDE
     Dosage: 0.5 MILLIGRAM, BID, OTHER BATCH
     Route: 048
     Dates: start: 20200407
  5. BUDESONIDE. [Suspect]
     Active Substance: BUDESONIDE
     Indication: CHRONIC OBSTRUCTIVE PULMONARY DISEASE
     Dosage: UNK (FROM TWO AND A HALF TO THREE YEARS)
     Route: 065

REACTIONS (8)
  - Physical product label issue [Unknown]
  - Off label use [Unknown]
  - Dyspnoea [Recovered/Resolved]
  - Product counterfeit [Recovered/Resolved]
  - Product quality issue [Unknown]
  - Product primary packaging issue [Recovered/Resolved]
  - Product use in unapproved indication [Unknown]
  - Product reconstitution quality issue [Recovered/Resolved]

NARRATIVE: CASE EVENT DATE: 20200405
